FAERS Safety Report 5597024-8 (Version None)
Quarter: 2007Q4

REPORT INFORMATION
  Report Type: 
  Country: None (occurrence: None)
  Receive Date: 20071221
  Receipt Date: 20071214
  Transmission Date: 20080405
  Serious: No
  Sender: FDA-Public Use
  Company Number: SPV1-2007-04509

PATIENT
  Age: 15 Year
  Sex: Male

DRUGS (8)
  1. VYVANSE [Suspect]
     Indication: ATTENTION DEFICIT/HYPERACTIVITY DISORDER
     Dosage: 50 MG, 1X/DAY:QD, ORAL ; 50 MG, 1X/DAY:QD, ORAL
     Route: 048
     Dates: start: 20070901, end: 20071001
  2. VYVANSE [Suspect]
     Indication: ATTENTION DEFICIT/HYPERACTIVITY DISORDER
     Dosage: 50 MG, 1X/DAY:QD, ORAL ; 50 MG, 1X/DAY:QD, ORAL
     Route: 048
     Dates: start: 20071001
  3. LAMICTAL [Suspect]
     Dosage: 25 MG, AS DIRECTED, ORAL ; 50 MG, AS DIRECTED, ORAL
     Route: 048
     Dates: end: 20071001
  4. LAMICTAL [Suspect]
     Dosage: 25 MG, AS DIRECTED, ORAL ; 50 MG, AS DIRECTED, ORAL
     Route: 048
     Dates: end: 20071001
  5. ALBUTEROL /00139502/ (SALBUTAMOL SULFATE) [Concomitant]
  6. KLONOPIN [Concomitant]
  7. SINGULAIR /01362602/ (MONTELUKAST SODIUM) [Concomitant]
  8. TENEX [Concomitant]

REACTIONS (2)
  - OFF LABEL USE [None]
  - TIC [None]
